FAERS Safety Report 5962060-6 (Version None)
Quarter: 2008Q4

REPORT INFORMATION
  Report Type: 
  Country: None (occurrence: None)
  Receive Date: 20081121
  Receipt Date: 20081112
  Transmission Date: 20090506
  Serious: Yes (Other)
  Sender: FDA-Public Use
  Company Number: PHBS2008US06328

PATIENT
  Age: 18 Year
  Sex: Female

DRUGS (5)
  1. CYCLOSPORINE [Suspect]
     Indication: STEM CELL TRANSPLANT
     Dosage: 2.5 MG/KG OVER 2H EVERY 12 HOURS
     Route: 042
  2. MYCOPHENOLATE MOFETIL [Suspect]
     Indication: STEM CELL TRANSPLANT
     Dosage: 15 MG/KG, BID
  3. BUSULFAN [Concomitant]
  4. FLUDARABINE PHOSPHATE [Concomitant]
  5. ANTI-THYMOCYTE GLOBULIN NOS [Concomitant]

REACTIONS (4)
  - HERPES ZOSTER [None]
  - INFLUENZA [None]
  - PANCREATITIS [None]
  - UVEITIS [None]
